FAERS Safety Report 4820862-3 (Version None)
Quarter: 2005Q4

REPORT INFORMATION
  Report Type: 
  Country: None (occurrence: None)
  Receive Date: 20051104
  Receipt Date: 20051017
  Transmission Date: 20060501
  Serious: Yes (Hospitalization)
  Sender: FDA-Public Use
  Company Number: BE-ABBOTT-05P-013-0314542-00

PATIENT
  Sex: Male

DRUGS (14)
  1. HUMIRA 40 MG/ 0.8 ML PRE-FILLED SYRINGE [Suspect]
     Indication: RHEUMATOID ARTHRITIS
     Route: 058
     Dates: start: 20050110, end: 20050712
  2. CARBAMAZEPINE [Interacting]
     Indication: DRUG USE FOR UNKNOWN INDICATION
     Route: 048
  3. CARBAMAZEPINE [Interacting]
  4. FOLIUMACID [Concomitant]
     Indication: DRUG USE FOR UNKNOWN INDICATION
     Route: 048
  5. FLUNITRAZEPAM [Concomitant]
     Indication: DRUG USE FOR UNKNOWN INDICATION
     Route: 048
  6. PREDNISONE [Concomitant]
     Indication: DRUG USE FOR UNKNOWN INDICATION
     Route: 048
  7. CHLOROQUINE PHOSPHATE [Concomitant]
     Indication: DRUG USE FOR UNKNOWN INDICATION
  8. CO-CIOVANE [Concomitant]
     Indication: DRUG USE FOR UNKNOWN INDICATION
  9. METHOTREXATE [Concomitant]
     Indication: DRUG USE FOR UNKNOWN INDICATION
  10. ALENDRONATE SODIUM [Concomitant]
     Indication: DRUG USE FOR UNKNOWN INDICATION
  11. DUOVENT MONODOSIS [Concomitant]
     Indication: DRUG USE FOR UNKNOWN INDICATION
  12. ACETAMINOPHEN [Concomitant]
     Indication: DRUG USE FOR UNKNOWN INDICATION
  13. AMOXYCLAV [Concomitant]
     Indication: DRUG USE FOR UNKNOWN INDICATION
     Dates: start: 20050701
  14. CELECOXIB [Concomitant]
     Indication: DRUG USE FOR UNKNOWN INDICATION

REACTIONS (13)
  - ACTIVITIES OF DAILY LIVING IMPAIRED [None]
  - CELLULITIS [None]
  - DIZZINESS [None]
  - DRUG INTERACTION [None]
  - DRUG LEVEL INCREASED [None]
  - DRUG TOXICITY [None]
  - DYSSTASIA [None]
  - FALL [None]
  - HIP FRACTURE [None]
  - SPEECH DISORDER [None]
  - TREMOR [None]
  - VASCULAR STENT INSERTION [None]
  - VEIN DISORDER [None]
